FAERS Safety Report 15319558 (Version 1)
Quarter: 2018Q3

REPORT INFORMATION
  Report Type: Spontaneous
  Country: US (occurrence: US)
  Receive Date: 20180827
  Receipt Date: 20180827
  Transmission Date: 20181010
  Serious: No
  Sender: FDA-Public Use
  Company Number: US-ORPHAN EUROPE-2054243

PATIENT
  Sex: Female
  Weight: 102.04 kg

DRUGS (4)
  1. CYSTADANE [Suspect]
     Active Substance: BETAINE
     Route: 048
  2. CYSTADANE [Suspect]
     Active Substance: BETAINE
     Indication: PRODUCT USED FOR UNKNOWN INDICATION
     Route: 048
     Dates: start: 2012
  3. CYSTADANE [Suspect]
     Active Substance: BETAINE
     Route: 048
     Dates: end: 2016
  4. LOVENOX [Concomitant]
     Active Substance: ENOXAPARIN SODIUM
     Route: 065

REACTIONS (2)
  - Urine odour abnormal [Recovered/Resolved]
  - Skin odour abnormal [Recovered/Resolved]
